FAERS Safety Report 23487347 (Version 2)
Quarter: 2024Q2

REPORT INFORMATION
  Report Type: Report from Study
  Country: US (occurrence: US)
  Receive Date: 20240206
  Receipt Date: 20240501
  Transmission Date: 20240716
  Serious: No
  Sender: FDA-Public Use
  Company Number: US-AstraZeneca-CH-00555446A

PATIENT
  Age: 36 Year
  Sex: Female

DRUGS (1)
  1. STRENSIQ [Suspect]
     Active Substance: ASFOTASE ALFA
     Indication: Hypophosphatasia
     Dosage: 77 MILLIGRAM, SIX TIMES/WEEK
     Route: 058
     Dates: start: 202312

REACTIONS (4)
  - Tinnitus [Not Recovered/Not Resolved]
  - Migraine [Not Recovered/Not Resolved]
  - Insurance issue [Unknown]
  - Injection site pain [Recovered/Resolved]

NARRATIVE: CASE EVENT DATE: 20240101
